FAERS Safety Report 7445055-5 (Version None)
Quarter: 2011Q2

REPORT INFORMATION
  Report Type: 
  Country: None (occurrence: None)
  Receive Date: 20110429
  Receipt Date: 20110419
  Transmission Date: 20111010
  Serious: Yes (Other)
  Sender: FDA-Public Use
  Company Number: PHFR2010GB05620

PATIENT
  Sex: Female

DRUGS (1)
  1. CLOZARIL [Suspect]
     Indication: SCHIZOPHRENIA
     Dates: start: 20060914, end: 20100906

REACTIONS (3)
  - NASOPHARYNGEAL CANCER [None]
  - GENERAL PHYSICAL HEALTH DETERIORATION [None]
  - DIFFUSE LARGE B-CELL LYMPHOMA [None]
